FAERS Safety Report 19210990 (Version 1)
Quarter: 2021Q2

REPORT INFORMATION
  Report Type: Spontaneous
  Country: US (occurrence: US)
  Receive Date: 20210503
  Receipt Date: 20210503
  Transmission Date: 20210717
  Serious: Yes (Other)
  Sender: FDA-Public Use
  Company Number: None

PATIENT
  Age: 58 Year
  Sex: Female
  Weight: 99 kg

DRUGS (7)
  1. PREMIPREXIOL [Concomitant]
  2. DOLOXTINE [Concomitant]
  3. VITAMIN B12 [Concomitant]
     Active Substance: CYANOCOBALAMIN
  4. LEVO [Concomitant]
     Active Substance: LEVOBUPIVACAINE
  5. VITAMIN D3 [Concomitant]
     Active Substance: CHOLECALCIFEROL
  6. NP THYROID [Suspect]
     Active Substance: LEVOTHYROXINE\LIOTHYRONINE
     Indication: THYROID DISORDER
     Dates: start: 20200128, end: 20210415
  7. MIGRAINE MEDICATION [Concomitant]
     Active Substance: UNSPECIFIED INGREDIENT

REACTIONS (5)
  - Blood pressure abnormal [None]
  - Alopecia [None]
  - Headache [None]
  - Visual impairment [None]
  - Weight increased [None]

NARRATIVE: CASE EVENT DATE: 20200201
